FAERS Safety Report 7367621-8 (Version None)
Quarter: 2011Q1

REPORT INFORMATION
  Report Type: 
  Country: None (occurrence: None)
  Receive Date: 20110322
  Receipt Date: 20110315
  Transmission Date: 20110831
  Serious: Yes (Other)
  Sender: FDA-Public Use
  Company Number: JP-PFIZER INC-2011045147

PATIENT
  Age: 6 Year
  Sex: Female

DRUGS (6)
  1. BRECRUS [Concomitant]
     Dosage: UNK
     Route: 048
     Dates: start: 20100818
  2. PREDONINE [Concomitant]
     Dosage: UNK
     Route: 048
     Dates: start: 20100819, end: 20101130
  3. MUCODYNE [Concomitant]
     Dosage: 100 MG, 3X/DAY
     Route: 048
     Dates: start: 20100818
  4. RIZABEN [Concomitant]
     Dosage: 100 MG, 1X/DAY
     Route: 048
     Dates: start: 20100821
  5. SALAZOPYRIN [Suspect]
     Indication: COLITIS ULCERATIVE
     Dosage: 1200MG/DAY
     Route: 048
     Dates: start: 20100819, end: 20100830
  6. MIYA BM [Concomitant]
     Dosage: 0.5 G, 3X/DAY
     Route: 048
     Dates: start: 20100818, end: 20100820

REACTIONS (1)
  - DRUG ERUPTION [None]
